FAERS Safety Report 10080254 (Version 1)
Quarter: 2014Q2

REPORT INFORMATION
  Report Type: Spontaneous
  Country: SG (occurrence: SG)
  Receive Date: 20140415
  Receipt Date: 20140415
  Transmission Date: 20141212
  Serious: Yes (Other)
  Sender: FDA-Public Use
  Company Number: SG-BAXTER-2014BAX017979

PATIENT
  Age: 24 Year
  Sex: Male

DRUGS (3)
  1. OSMITROL INJECTION 20% [Suspect]
     Indication: INTRACRANIAL PRESSURE INCREASED
     Dosage: LARGE INTERVALS
     Route: 065
  2. PROPOFOL [Concomitant]
     Indication: SEDATION
     Route: 065
  3. NORADRENALINE [Concomitant]
     Indication: REDUCTION OF INCREASED INTRACRANIAL PRESSURE
     Route: 065

REACTIONS (1)
  - Drug ineffective [Not Recovered/Not Resolved]
